FAERS Safety Report 10074089 (Version 1)
Quarter: 2014Q2

REPORT INFORMATION
  Report Type: Spontaneous
  Country: CA (occurrence: CA)
  Receive Date: 20140411
  Receipt Date: 20140411
  Transmission Date: 20141212
  Serious: Yes (Other)
  Sender: FDA-Public Use
  Company Number: CHPA2014CA005132

PATIENT
  Age: 48 Year
  Sex: Female

DRUGS (1)
  1. THRIVE 2 MG [Suspect]
     Indication: SMOKING CESSATION THERAPY
     Dosage: 2 MG, UNK
     Route: 048
     Dates: start: 20131125

REACTIONS (1)
  - Drug dependence [Not Recovered/Not Resolved]
